FAERS Safety Report 9749845 (Version 1)
Quarter: 2013Q4

REPORT INFORMATION
  Report Type: Spontaneous
  Country: FR (occurrence: FR)
  Receive Date: 20131212
  Receipt Date: 20131212
  Transmission Date: 20140711
  Serious: Yes (Hospitalization)
  Sender: FDA-Public Use
  Company Number: FR-SA-2013SA125867

PATIENT
  Age: 41 Year
  Sex: Female

DRUGS (10)
  1. VENLAFAXINE [Suspect]
     Indication: PRODUCT USED FOR UNKNOWN INDICATION
     Dosage: STRENGTH: 37.5 (UNITS NOT SPECIFIED)?TAKEN FROM: MORE THAN 2 YEARS
     Route: 048
  2. LOVENOX [Suspect]
     Indication: PRODUCT USED FOR UNKNOWN INDICATION
     Route: 058
     Dates: start: 20131008, end: 20131008
  3. PAROXETINE [Suspect]
     Indication: PRODUCT USED FOR UNKNOWN INDICATION
     Route: 048
     Dates: start: 20120505, end: 20131009
  4. VOLTARENE [Suspect]
     Indication: BACK PAIN
     Route: 048
     Dates: start: 201310
  5. DICLOFENAC SODIUM [Suspect]
     Indication: BACK PAIN
     Dosage: STRENGTH: 1%
     Route: 003
     Dates: start: 201310
  6. NEURONTIN [Concomitant]
     Dosage: START, MORE THAN 2 YEARS
  7. LYSANXIA [Concomitant]
     Dosage: START, MORE THAN 2 YEARS
  8. TOPALGIC [Concomitant]
     Dosage: START, MORE THAN 2 YEARS
  9. GILENYA [Concomitant]
     Dates: start: 201204
  10. FURADANTINE [Concomitant]
     Dates: start: 20130909

REACTIONS (2)
  - Haematoma [Not Recovered/Not Resolved]
  - Condition aggravated [Not Recovered/Not Resolved]
